FAERS Safety Report 9276966 (Version 2)
Quarter: 2013Q2

REPORT INFORMATION
  Report Type: Spontaneous
  Country: US (occurrence: US)
  Receive Date: 20130507
  Receipt Date: 20130611
  Transmission Date: 20140414
  Serious: Yes (Other)
  Sender: FDA-Public Use
  Company Number: US-PFIZER INC-2013139834

PATIENT
  Age: 32 Year
  Sex: Male
  Weight: 65.76 kg

DRUGS (1)
  1. NEURONTIN [Suspect]
     Indication: EPILEPSY
     Dosage: UNK
     Dates: start: 2012, end: 201304

REACTIONS (4)
  - Convulsion [Unknown]
  - Fall [Unknown]
  - Head injury [Unknown]
  - Impaired work ability [Unknown]
